FAERS Safety Report 4899878-7 (Version None)
Quarter: 2006Q1

REPORT INFORMATION
  Report Type: 
  Country: None (occurrence: None)
  Receive Date: 20060118
  Receipt Date: 20050613
  Transmission Date: 20060701
  Serious: No
  Sender: FDA-Public Use
  Company Number: 2005000806

PATIENT
  Age: 67 Year
  Sex: Male
  Weight: 101.1521 kg

DRUGS (4)
  1. TARCEVA [Suspect]
     Indication: NON-SMALL CELL LUNG CANCER
     Dosage: 150 MG (QD), ORAL; 100 MG (QD), ORAL
     Route: 048
     Dates: start: 20050421, end: 20050428
  2. TARCEVA [Suspect]
     Indication: NON-SMALL CELL LUNG CANCER
     Dosage: 150 MG (QD), ORAL; 100 MG (QD), ORAL
     Route: 048
  3. COMPAZINE [Concomitant]
  4. PREDNISONE TAB [Concomitant]

REACTIONS (7)
  - ARTHRALGIA [None]
  - DYSPNOEA [None]
  - FATIGUE [None]
  - MYALGIA [None]
  - PYREXIA [None]
  - RASH [None]
  - VIRAL INFECTION [None]
